FAERS Safety Report 15869350 (Version 5)
Quarter: 2019Q2

REPORT INFORMATION
  Report Type: Report from Study
  Country: US (occurrence: US)
  Receive Date: 20190125
  Receipt Date: 20190531
  Transmission Date: 20190711
  Serious: Yes (Hospitalization)
  Sender: FDA-Public Use
  Company Number: US-ACTELION-A-US2018-171116

PATIENT
  Age: 43 Year
  Sex: Female
  Weight: 114.29 kg

DRUGS (11)
  1. GABAPENTIN. [Concomitant]
     Active Substance: GABAPENTIN
     Dosage: 300 MG, TID, PRN
     Route: 048
  2. OPSUMIT [Suspect]
     Active Substance: MACITENTAN
     Dosage: 10 MG, QD
     Route: 048
  3. ORENITRAM [Suspect]
     Active Substance: TREPROSTINIL
     Indication: PRODUCT USED FOR UNKNOWN INDICATION
     Dosage: 1.25 MG, TID
     Route: 048
  4. HYDRALAZINE [Concomitant]
     Active Substance: HYDRALAZINE HYDROCHLORIDE
     Dosage: 25 MG, TID
     Route: 048
  5. ARIPIPRAZOLE. [Concomitant]
     Active Substance: ARIPIPRAZOLE
     Dosage: 30 MG, QPM
     Route: 048
  6. LEVOTHYROXINE SODIUM. [Concomitant]
     Active Substance: LEVOTHYROXINE SODIUM
     Dosage: 137 MCG, QAM
     Route: 048
  7. OPSUMIT [Suspect]
     Active Substance: MACITENTAN
     Indication: PULMONARY ARTERIAL HYPERTENSION
     Dosage: 10 MG, QPM
     Route: 048
     Dates: start: 201712
  8. ORENITRAM [Suspect]
     Active Substance: TREPROSTINIL
     Dosage: UNK MG, UNK
     Route: 065
  9. HEROIN [Suspect]
     Active Substance: DIAMORPHINE
     Indication: PRODUCT USED FOR UNKNOWN INDICATION
     Route: 065
  10. SILDENAFIL CITRATE. [Concomitant]
     Active Substance: SILDENAFIL CITRATE
     Dosage: 20 MG, TID
     Route: 048
  11. TORSEMIDE. [Concomitant]
     Active Substance: TORSEMIDE
     Dosage: 20 MG, QD
     Route: 048

REACTIONS (13)
  - Diarrhoea [Unknown]
  - Angina unstable [Recovering/Resolving]
  - Bacterial infection [Unknown]
  - Overdose [Recovered/Resolved]
  - Dyspnoea [Unknown]
  - Unevaluable event [Unknown]
  - Dizziness [Unknown]
  - Product dose omission [Recovered/Resolved]
  - Contusion [Unknown]
  - Asthenia [Recovering/Resolving]
  - Feeling of despair [Recovering/Resolving]
  - Pulmonary arterial hypertension [Recovering/Resolving]
  - Dyspnoea exertional [Recovering/Resolving]

NARRATIVE: CASE EVENT DATE: 2018
